FAERS Safety Report 11814701 (Version 1)
Quarter: 2015Q4

REPORT INFORMATION
  Report Type: Spontaneous
  Country: CN (occurrence: CN)
  Receive Date: 20151209
  Receipt Date: 20151209
  Transmission Date: 20160305
  Serious: Yes (Life-Threatening)
  Sender: FDA-Public Use
  Company Number: CN-HQ SPECIALTY-CN-2015INT000672

PATIENT

DRUGS (1)
  1. TENIPOSIDE. [Suspect]
     Active Substance: TENIPOSIDE
     Indication: CENTRAL NERVOUS SYSTEM LYMPHOMA
     Dosage: 60 MG/M2, UNK

REACTIONS (1)
  - Granulocytopenia [Unknown]
